FAERS Safety Report 10269550 (Version 1)
Quarter: 2014Q3

REPORT INFORMATION
  Report Type: Report from Study
  Country: CN (occurrence: CN)
  Receive Date: 20140701
  Receipt Date: 20140701
  Transmission Date: 20150326
  Serious: Yes (Hospitalization)
  Sender: FDA-Public Use
  Company Number: CN-BRISTOL-MYERS SQUIBB COMPANY-21079678

PATIENT
  Age: 41 Year
  Sex: Male
  Weight: 56 kg

DRUGS (2)
  1. GLUCOPHAGE [Suspect]
     Active Substance: METFORMIN HYDROCHLORIDE
     Indication: TYPE 2 DIABETES MELLITUS
     Dosage: 30JUL2013
     Route: 048
     Dates: start: 20130716
  2. SITAGLIPTIN PHOSPHATE [Suspect]
     Active Substance: SITAGLIPTIN PHOSPHATE
     Indication: TYPE 2 DIABETES MELLITUS
     Route: 048
     Dates: start: 20130730, end: 20131119

REACTIONS (2)
  - Upper respiratory tract infection [Not Recovered/Not Resolved]
  - Diabetic ketoacidosis [Not Recovered/Not Resolved]

NARRATIVE: CASE EVENT DATE: 20131119
